FAERS Safety Report 18582947 (Version 1)
Quarter: 2020Q4

REPORT INFORMATION
  Report Type: Spontaneous
  Country: IT (occurrence: IT)
  Receive Date: 20201206
  Receipt Date: 20201206
  Transmission Date: 20210114
  Serious: Yes (Other)
  Sender: FDA-Public Use
  Company Number: IT-INCYTE CORPORATION-2020IN011898

PATIENT

DRUGS (1)
  1. JAKAVI [Suspect]
     Active Substance: RUXOLITINIB
     Indication: PRIMARY MYELOFIBROSIS
     Dosage: 15 MG, BID (MEDIAN CUMULATIVE DOSE)
     Route: 065

REACTIONS (2)
  - Second primary malignancy [Recovering/Resolving]
  - Malignant genitourinary tract neoplasm [Recovering/Resolving]
